FAERS Safety Report 21129123 (Version 4)
Quarter: 2022Q4

REPORT INFORMATION
  Report Type: Spontaneous
  Country: JP (occurrence: JP)
  Receive Date: 20220725
  Receipt Date: 20221006
  Transmission Date: 20230113
  Serious: Yes (Death)
  Sender: FDA-Public Use
  Company Number: JP-DSJP-DSJ-2022-125963

PATIENT
  Age: 56 Year
  Sex: Female

DRUGS (1)
  1. ENHERTU [Suspect]
     Active Substance: FAM-TRASTUZUMAB DERUXTECAN-NXKI
     Indication: HER2 positive gastric cancer
     Dosage: 6.4 MG/KG, ONCE EVERY 3 WK
     Route: 041
     Dates: start: 20220621, end: 20220621

REACTIONS (3)
  - Neutrophil count decreased [Fatal]
  - Platelet count decreased [Fatal]
  - Disease progression [Fatal]

NARRATIVE: CASE EVENT DATE: 20220627
